FAERS Safety Report 12607131 (Version 1)
Quarter: 2016Q3

REPORT INFORMATION
  Report Type: Report from Study
  Country: GB (occurrence: GB)
  Receive Date: 20160729
  Receipt Date: 20160729
  Transmission Date: 20161109
  Serious: Yes (Death, Hospitalization, Other)
  Sender: FDA-Public Use
  Company Number: GB-ASTELLAS-2007001809

PATIENT
  Age: 72 Year
  Sex: Male

DRUGS (1)
  1. ERLOTINIB [Suspect]
     Active Substance: ERLOTINIB
     Indication: NON-SMALL CELL LUNG CANCER
     Route: 048
     Dates: start: 20070824, end: 20070902

REACTIONS (8)
  - Diarrhoea [Recovered/Resolved]
  - Non-small cell lung cancer [Fatal]
  - Dyspnoea [Not Recovered/Not Resolved]
  - Pneumonia [Fatal]
  - Lethargy [Not Recovered/Not Resolved]
  - Rash [Not Recovered/Not Resolved]
  - Myocardial ischaemia [Fatal]
  - Metastatic neoplasm [Fatal]

NARRATIVE: CASE EVENT DATE: 20070824
